FAERS Safety Report 22240900 (Version 1)
Quarter: 2023Q2

REPORT INFORMATION
  Report Type: Spontaneous
  Country: US (occurrence: US)
  Receive Date: 20230421
  Receipt Date: 20230421
  Transmission Date: 20230722
  Serious: No
  Sender: FDA-Public Use
  Company Number: US-GALDERMA-US2023005209

PATIENT

DRUGS (3)
  1. PROACTIV MD ADAPALENE ACNE TREATMENT [Suspect]
     Active Substance: ADAPALENE
     Indication: Acne
     Dosage: 1 DOSAGE FORM, EITHER ONCE OR TWICE A DAY, SIZE TOP PART OF THE FINGER APPLIED ONFACE, FOREHEAD, SID
     Route: 061
     Dates: start: 2022
  2. Proactiv MD Ultra Gentle Cleanser [Concomitant]
     Indication: Acne
     Dosage: 1 DOSAGE FORM, ONCE OR TWICE A DAY, SIZE OF INDEX FINGER, FOREHEAD, SIDE OF MY FACE, NOSE, LIP CHIN
     Route: 061
     Dates: start: 2022
  3. Proactiv MD Ultra Hydrating Moisturizer [Concomitant]
     Indication: Acne
     Dosage: 1 DOSAGE FORM, ONCE OR TWICE A DAY, SIZE OF INDEX FINGER, FOREHEAD, SIDE OF MY FACE, NOSE, LIP CHIN
     Route: 061
     Dates: start: 2022

REACTIONS (3)
  - Drug ineffective [Unknown]
  - Inappropriate schedule of product administration [Recovered/Resolved]
  - Overdose [Recovered/Resolved]
